FAERS Safety Report 4895734-9 (Version None)
Quarter: 2006Q1

REPORT INFORMATION
  Report Type: 
  Country: None (occurrence: None)
  Receive Date: 20060125
  Receipt Date: 20060104
  Transmission Date: 20060701
  Serious: Yes (Death)
  Sender: FDA-Public Use
  Company Number: US200601000770

PATIENT
  Age: 37 Year
  Sex: 0

DRUGS (3)
  1. PROZAC [Suspect]
     Dosage: ORAL
     Route: 048
  2. METHYLPHENIDATE HCL [Concomitant]
  3. BENZFETAMINE (BENZFETAMINE) [Concomitant]

REACTIONS (2)
  - DRUG ABUSER [None]
  - DRUG TOXICITY [None]
